FAERS Safety Report 10272309 (Version 1)
Quarter: 2014Q2

REPORT INFORMATION
  Report Type: Spontaneous
  Country: US (occurrence: None)
  Receive Date: 20140630
  Receipt Date: 20140630
  Transmission Date: 20141212
  Serious: Yes (Life-Threatening, Other)
  Sender: FDA-Public Use
  Company Number: None

PATIENT
  Age: 24 Year
  Sex: Female

DRUGS (1)
  1. NALOXONE [Suspect]
     Indication: OVERDOSE
     Dosage: INTO VEIN
     Dates: start: 20140624, end: 20140624

REACTIONS (9)
  - Hypersensitivity [None]
  - Tinnitus [None]
  - Dizziness [None]
  - Haematemesis [None]
  - Pollakiuria [None]
  - Apparent death [None]
  - Neck pain [None]
  - Dyspnoea [None]
  - Angina pectoris [None]
